FAERS Safety Report 7310049-7 (Version None)
Quarter: 2011Q1

REPORT INFORMATION
  Report Type: 
  Country: None (occurrence: None)
  Receive Date: 20110224
  Receipt Date: 20110217
  Transmission Date: 20110831
  Serious: Yes (Other)
  Sender: FDA-Public Use
  Company Number: PHHY2011BR08989

PATIENT
  Sex: Male

DRUGS (4)
  1. LOPERAMIDE HYDROCHLORIDE [Concomitant]
  2. STALEVO 100 [Suspect]
     Indication: PARKINSON'S DISEASE
     Dosage: 3 (50/12.5/200 MG)  DF, DAILY
     Route: 048
     Dates: start: 20101001
  3. STALEVO 100 [Interacting]
     Dosage: 2 (50/12.5/200 MG) DF, DAILY
     Route: 048
     Dates: start: 20110131
  4. FLOREX [Concomitant]

REACTIONS (3)
  - DIARRHOEA [None]
  - FEEDING DISORDER [None]
  - WEIGHT DECREASED [None]
